FAERS Safety Report 8345941-8 (Version None)
Quarter: 2012Q2

REPORT INFORMATION
  Report Type: 
  Country: None (occurrence: None)
  Receive Date: 20120507
  Receipt Date: 20120420
  Transmission Date: 20120825
  Serious: Yes (Hospitalization, Other)
  Sender: FDA-Public Use
  Company Number: 2012-00480

PATIENT
  Age: 38 Year
  Sex: Female
  Weight: 68.0396 kg

DRUGS (3)
  1. AMPHETAMINE + DEXTROAMPHETAMINE (ADDERALL) [Concomitant]
  2. HYDROCODONE BITARTRATE [Concomitant]
  3. LEVOFLOXACIN [Suspect]
     Indication: PNEUMONIA
     Dosage: 500 MG (500 MG, 1 IN 1 D), PER ORAL
     Route: 048
     Dates: start: 20120302, end: 20120306

REACTIONS (7)
  - PAIN IN EXTREMITY [None]
  - PAIN [None]
  - ORAL FUNGAL INFECTION [None]
  - CANDIDIASIS [None]
  - OEDEMA PERIPHERAL [None]
  - ARTHRALGIA [None]
  - IMPAIRED WORK ABILITY [None]
